FAERS Safety Report 8320875-3 (Version None)
Quarter: 2012Q2

REPORT INFORMATION
  Report Type: 
  Country: None (occurrence: None)
  Receive Date: 20120430
  Receipt Date: 20120423
  Transmission Date: 20120825
  Serious: Yes (Life-Threatening, Disabling, Other)
  Sender: FDA-Public Use
  Company Number: PHHY2012NO034426

PATIENT
  Sex: Female

DRUGS (3)
  1. GLEEVEC [Suspect]
     Dosage: 400 MG, DAILY
     Dates: start: 20080101, end: 20080101
  2. TASIGNA [Suspect]
     Indication: CHRONIC MYELOID LEUKAEMIA
     Dosage: 200 MG, UNKNOWN
     Route: 048
     Dates: start: 20080801, end: 20120301
  3. GLEEVEC [Suspect]
     Indication: CHRONIC MYELOID LEUKAEMIA
     Dosage: 400 MG, FOR 5 DAYS A WEEK
     Dates: start: 20040101

REACTIONS (4)
  - INFECTION [None]
  - LEUKOPENIA [None]
  - ARTERIOSCLEROSIS [None]
  - NAUSEA [None]
